FAERS Safety Report 11258815 (Version 2)
Quarter: 2015Q3

REPORT INFORMATION
  Report Type: Spontaneous
  Country: GB (occurrence: GB)
  Receive Date: 20150710
  Receipt Date: 20150819
  Transmission Date: 20151125
  Serious: Yes (Death, Hospitalization, Other)
  Sender: FDA-Public Use
  Company Number: GB-TEVA-576443ACC

PATIENT
  Age: 69 Year

DRUGS (3)
  1. ANTIBIOTICS [Concomitant]
     Active Substance: UNSPECIFIED INGREDIENT
     Route: 042
  2. OXYGEN. [Concomitant]
     Active Substance: OXYGEN
  3. DIAZEPAM. [Suspect]
     Active Substance: DIAZEPAM
     Route: 042
     Dates: start: 20150315

REACTIONS (11)
  - Oxygen saturation decreased [Not Recovered/Not Resolved]
  - Contraindication to medical treatment [Unknown]
  - Hypotension [Not Recovered/Not Resolved]
  - Contraindicated drug administered [Unknown]
  - Pulseless electrical activity [Not Recovered/Not Resolved]
  - Septic shock [Fatal]
  - Hyperhidrosis [Not Recovered/Not Resolved]
  - Cardiac arrest [Recovered/Resolved]
  - Dyspnoea [Not Recovered/Not Resolved]
  - Multi-organ failure [Unknown]
  - Tachycardia [Not Recovered/Not Resolved]

NARRATIVE: CASE EVENT DATE: 20150315
